FAERS Safety Report 7462292-4 (Version None)
Quarter: 2011Q2

REPORT INFORMATION
  Report Type: 
  Country: None (occurrence: None)
  Receive Date: 20110506
  Receipt Date: 20100212
  Transmission Date: 20111010
  Serious: Yes (Other)
  Sender: FDA-Public Use
  Company Number: CA-BAYER-201014518NA

PATIENT
  Sex: Female

DRUGS (1)
  1. MIRENA [Suspect]
     Indication: PRODUCT USED FOR UNKNOWN INDICATION
     Dosage: 20 ?G (DAILY DOSE), , INTRA-UTERINE
     Route: 015
     Dates: start: 20091210, end: 20100408

REACTIONS (13)
  - ABDOMINAL PAIN [None]
  - BREAST PAIN [None]
  - BREAST CANCER [None]
  - PAIN [None]
  - ORAL HERPES [None]
  - LIBIDO DECREASED [None]
  - DYSPAREUNIA [None]
  - VAGINAL HAEMORRHAGE [None]
  - ACNE [None]
  - NAUSEA [None]
  - BREAST MASS [None]
  - BACK PAIN [None]
  - MIGRAINE [None]
